FAERS Safety Report 16731068 (Version 2)
Quarter: 2024Q2

REPORT INFORMATION
  Report Type: Report from Study
  Country: AU (occurrence: AU)
  Receive Date: 20190822
  Receipt Date: 20240531
  Transmission Date: 20240715
  Serious: Yes (Other)
  Sender: FDA-Public Use
  Company Number: AU-JNJFOC-20190130855

PATIENT
  Age: 55 Year
  Sex: Female

DRUGS (2)
  1. REMICADE [Suspect]
     Active Substance: INFLIXIMAB
     Indication: Crohn^s disease
     Route: 041
     Dates: start: 20160727, end: 20190731
  2. IMURAN [Concomitant]
     Active Substance: AZATHIOPRINE

REACTIONS (4)
  - Psoriasis [Unknown]
  - Rash [Not Recovered/Not Resolved]
  - Herpes zoster [Recovered/Resolved]
  - Laryngitis [Recovered/Resolved]

NARRATIVE: CASE EVENT DATE: 20181001
